FAERS Safety Report 11379073 (Version 1)
Quarter: 2015Q3

REPORT INFORMATION
  Report Type: Spontaneous
  Country: US (occurrence: None)
  Receive Date: 20150813
  Receipt Date: 20150813
  Transmission Date: 20151125
  Serious: Yes (Death, Life-Threatening, Hospitalization, Disabling)
  Sender: FDA-Public Use
  Company Number: None

PATIENT
  Age: 81 Year
  Sex: Male
  Weight: 68.04 kg

DRUGS (6)
  1. MIRTAZAPINE. [Concomitant]
     Active Substance: MIRTAZAPINE
  2. FLONASE (FLUTICASONE) [Concomitant]
  3. ELIQUIS [Suspect]
     Active Substance: APIXABAN
     Indication: ATRIAL FIBRILLATION
     Dosage: 2 PILLS (5MG) AM + PM 2X DAILY (1 PILL AM/1 PM) BY MOUTH
     Route: 048
     Dates: start: 20140626, end: 20140923
  4. MULTIVITAMIN [Concomitant]
     Active Substance: VITAMINS
  5. ELIQUIS [Suspect]
     Active Substance: APIXABAN
     Indication: INTERNAL HAEMORRHAGE
     Dosage: 2 PILLS (5MG) AM + PM 2X DAILY (1 PILL AM/1 PM) BY MOUTH
     Route: 048
     Dates: start: 20140626, end: 20140923
  6. SEVERAL FOR HBP [Concomitant]

REACTIONS (12)
  - Blood urine present [None]
  - Transient ischaemic attack [None]
  - Fall [None]
  - Dysuria [None]
  - Blood pressure fluctuation [None]
  - Visual impairment [None]
  - Cerebral haemorrhage [None]
  - Delirium [None]
  - Drug effect incomplete [None]
  - Urinary bladder haemorrhage [None]
  - Hip fracture [None]
  - Upper limb fracture [None]

NARRATIVE: CASE EVENT DATE: 20140923
